FAERS Safety Report 4414363-4 (Version None)
Quarter: 2004Q2

REPORT INFORMATION
  Report Type: 
  Country: None (occurrence: None)
  Receive Date: 20040630
  Receipt Date: 20040303
  Transmission Date: 20050107
  Serious: No
  Sender: FDA-Public Use
  Company Number: 04P-163-0252092-00

PATIENT
  Age: 50 Year
  Sex: Female
  Weight: 90.7194 kg

DRUGS (9)
  1. HUMIRA [Suspect]
     Indication: RHEUMATOID ARTHRITIS
     Dosage: 40 MG, 1 IN 2 WK, SUBCUTANEOUS
     Route: 058
     Dates: start: 20031001
  2. PROPACET 100 [Concomitant]
  3. LEFLUNOMIDE [Concomitant]
  4. DIAZIDE [Concomitant]
  5. GLUCOPHAGE [Concomitant]
  6. AMLODIPINE BESYLATE [Concomitant]
  7. SERTRALINE HYDROCHLORIDE [Concomitant]
  8. AMITRIPTYLINE HCL [Concomitant]
  9. PREDNISONE TAB [Concomitant]

REACTIONS (4)
  - CYST [None]
  - DRUG INEFFECTIVE [None]
  - OEDEMA PERIPHERAL [None]
  - PAIN IN EXTREMITY [None]
